FAERS Safety Report 8856797 (Version 1)
Quarter: 2012Q4

REPORT INFORMATION
  Report Type: Spontaneous
  Country: ES (occurrence: None)
  Receive Date: 20121019
  Receipt Date: 20121019
  Transmission Date: 20130627
  Serious: Yes (Hospitalization)
  Sender: FDA-Public Use
  Company Number: 2012MA012272

PATIENT
  Age: 68 Year
  Sex: Female

DRUGS (4)
  1. GEMCITABINE HYDROCHLORIDE [Suspect]
     Indication: LUNG NODULE
     Dosage: q15d
     Dates: start: 2008
  2. CISPLATIN [Suspect]
     Indication: LUNG NODULE
     Dates: start: 2008
  3. CARBOPLATIN (CARBOPLATIN) [Suspect]
     Indication: LUNG NODULE
  4. PEMETREXED [Suspect]
     Indication: LUNG NODULE
     Dosage: Q28D
     Dates: start: 200906

REACTIONS (4)
  - Rib fracture [None]
  - Spinal fracture [None]
  - Spinal compression fracture [None]
  - Osteoporosis [None]
